FAERS Safety Report 8584101 (Version 3)
Quarter: 2013Q2

REPORT INFORMATION
  Report Type: Spontaneous
  Country: US (occurrence: US)
  Receive Date: 20120529
  Receipt Date: 20130405
  Transmission Date: 20140414
  Serious: Yes (Death, Hospitalization, Other)
  Sender: FDA-Public Use
  Company Number: US-B.I. PHARMACEUTICALS,INC./RIDGEFIELD-2012-BP-12382BP

PATIENT
  Age: 78 Year
  Sex: Female
  Weight: 52.16 kg

DRUGS (1)
  1. PRADAXA [Suspect]
     Indication: ANTICOAGULANT THERAPY
     Dates: start: 20110401, end: 201106

REACTIONS (6)
  - Gastrointestinal haemorrhage [Fatal]
  - Respiratory failure [Fatal]
  - Haemorrhagic stroke [Unknown]
  - Cerebral haemorrhage [Unknown]
  - Rectal haemorrhage [Unknown]
  - Ischaemic stroke [Unknown]
